FAERS Safety Report 9055576 (Version 1)
Quarter: 2013Q1

REPORT INFORMATION
  Report Type: Other
  Country: PT (occurrence: PT)
  Receive Date: 20130206
  Receipt Date: 20130206
  Transmission Date: 20140127
  Serious: Yes (Life-Threatening, Hospitalization, Disabling)
  Sender: FDA-Public Use
  Company Number: PT-WATSON-2013-01867

PATIENT
  Age: 28 None
  Sex: Male

DRUGS (2)
  1. TRAMADOL HYDROCHLORIDE (UNKNOWN) [Suspect]
     Indication: PAIN
     Dosage: 1 DF, TID
     Route: 048
     Dates: start: 20120521
  2. TRAMADOL HYDRCHLORIDE [Suspect]
     Indication: PAIN
     Dosage: 1 DF, TID
     Route: 048
     Dates: start: 20120521

REACTIONS (9)
  - Cardio-respiratory arrest [Unknown]
  - Abnormal behaviour [Unknown]
  - Loss of consciousness [Unknown]
  - Toxicity to various agents [Unknown]
  - Convulsion [Unknown]
  - Weight decreased [Unknown]
  - Balance disorder [Unknown]
  - Fatigue [Unknown]
  - Anxiety [Unknown]
